FAERS Safety Report 5396101-4 (Version None)
Quarter: 2007Q3

REPORT INFORMATION
  Report Type: 
  Country: None (occurrence: None)
  Receive Date: 20070718
  Receipt Date: 20070108
  Transmission Date: 20080115
  Serious: Yes (Hospitalization, Other)
  Sender: FDA-Public Use
  Company Number: 2006136381

PATIENT
  Age: 51 Year
  Sex: Male

DRUGS (2)
  1. CELEBREX [Suspect]
     Indication: PAIN
     Dosage: 400 MG (200 MG,2 IN 1 D)
     Dates: start: 19990124
  2. CELEBREX [Suspect]
     Indication: SWELLING
     Dosage: 400 MG (200 MG,2 IN 1 D)
     Dates: start: 19990124

REACTIONS (1)
  - DEEP VEIN THROMBOSIS [None]
